FAERS Safety Report 23493843 (Version 2)
Quarter: 2024Q2

REPORT INFORMATION
  Report Type: Spontaneous
  Country: US (occurrence: US)
  Receive Date: 20240207
  Receipt Date: 20240424
  Transmission Date: 20240716
  Serious: No
  Sender: FDA-Public Use
  Company Number: US-SA-SAC20240201001452

PATIENT
  Age: 64 Year
  Sex: Male

DRUGS (24)
  1. KEVZARA [Suspect]
     Active Substance: SARILUMAB
     Indication: Rheumatoid arthritis
     Dosage: 200 MG, QOW
     Route: 058
  2. ATORVASTATIN [Concomitant]
     Active Substance: ATORVASTATIN
     Dosage: 20 MG
  3. FLUTICASONE [Concomitant]
     Active Substance: FLUTICASONE
     Dosage: 300MG
  4. FUROSEMIDE [Concomitant]
     Active Substance: FUROSEMIDE
     Dosage: 300MG
  5. GABAPENTIN [Concomitant]
     Active Substance: GABAPENTIN
     Dosage: 200MG
  6. ACETAMINOPHEN\HYDROCODONE BITARTRATE [Concomitant]
     Active Substance: ACETAMINOPHEN\HYDROCODONE BITARTRATE
     Dosage: 200MG
  7. MELOXICAM [Concomitant]
     Active Substance: MELOXICAM
     Dosage: 04MG
  8. POTASSIUM [Concomitant]
     Active Substance: POTASSIUM
     Dosage: 10MG
  9. RASUVO [Concomitant]
     Active Substance: METHOTREXATE SODIUM
     Dosage: 420MG
  10. REPATHA [Concomitant]
     Active Substance: EVOLOCUMAB
     Dosage: 420MG
  11. RESTASIS [Concomitant]
     Active Substance: CYCLOSPORINE
     Dosage: 500MG
  12. VALACYCLOVIR HYDROCHLORIDE [Concomitant]
     Active Substance: VALACYCLOVIR HYDROCHLORIDE
     Dosage: 1MG
  13. FOLIC ACID [Concomitant]
     Active Substance: FOLIC ACID
     Dosage: 50MG
  14. LOSARTAN POTASSIUM [Concomitant]
     Active Substance: LOSARTAN POTASSIUM
     Dosage: 25MG
  15. METHOTREXATE [Concomitant]
     Active Substance: METHOTREXATE
     Dosage: 25MG
  16. METOPROLOL\RAMIPRIL [Concomitant]
     Active Substance: METOPROLOL\RAMIPRIL
     Dosage: 25MG
  17. SYNTHROID [Concomitant]
     Active Substance: LEVOTHYROXINE SODIUM
     Dosage: 20MG
  18. XARELTO [Concomitant]
     Active Substance: RIVAROXABAN
     Dosage: 20MG
  19. NITROGLYCERIN [Concomitant]
     Active Substance: NITROGLYCERIN
     Dosage: UNK
  20. HYDROCODONE [Concomitant]
     Active Substance: HYDROCODONE
  21. POTASSIUM CHLORIDE [Concomitant]
     Active Substance: POTASSIUM CHLORIDE
  22. VALACYCLOVIR [Concomitant]
     Active Substance: VALACYCLOVIR HYDROCHLORIDE
  23. METOPROLOL SUCCINATE [Concomitant]
     Active Substance: METOPROLOL SUCCINATE
  24. ACETAMINOPHEN [Concomitant]
     Active Substance: ACETAMINOPHEN

REACTIONS (4)
  - Injection site reaction [Not Recovered/Not Resolved]
  - Cyst [Not Recovered/Not Resolved]
  - Neuralgia [Unknown]
  - Back pain [Not Recovered/Not Resolved]
